FAERS Safety Report 25735940 (Version 1)
Quarter: 2025Q3

REPORT INFORMATION
  Report Type: Spontaneous
  Country: CH (occurrence: CH)
  Receive Date: 20250828
  Receipt Date: 20250828
  Transmission Date: 20251020
  Serious: Yes (Hospitalization)
  Sender: MERCK SHARP & DOHME LLC
  Company Number: None

PATIENT
  Age: 57 Year
  Sex: Female

DRUGS (6)
  1. PEMBROLIZUMAB [Suspect]
     Active Substance: PEMBROLIZUMAB
     Indication: Nodular melanoma
     Route: 042
     Dates: start: 20240425, end: 20250206
  2. HERBALS\HOPS\VALERIAN [Suspect]
     Active Substance: HERBALS\HOPS\VALERIAN
     Indication: Initial insomnia
     Route: 048
     Dates: start: 20250611
  3. LEVOTHYROXINE [Concomitant]
     Active Substance: LEVOTHYROXINE
     Indication: Hypothyroidism
     Route: 048
     Dates: start: 2024
  4. TRAMADOL [Suspect]
     Active Substance: TRAMADOL
     Indication: Procedural pain
     Dosage: + EN R?SERVE.
     Route: 048
     Dates: start: 20250613, end: 20250710
  5. METAMIZOLE [Suspect]
     Active Substance: METAMIZOLE
     Indication: Procedural pain
     Route: 048
     Dates: start: 20250612, end: 20250706
  6. PANTOPRAZOLE [Suspect]
     Active Substance: PANTOPRAZOLE
     Indication: Prophylaxis against gastrointestinal ulcer
     Route: 048
     Dates: start: 20250613, end: 20250706

REACTIONS (1)
  - Hepatic enzyme increased [Recovering/Resolving]

NARRATIVE: CASE EVENT DATE: 20250703
